FAERS Safety Report 5615630-9 (Version None)
Quarter: 2008Q1

REPORT INFORMATION
  Report Type: 
  Country: None (occurrence: None)
  Receive Date: 20080206
  Receipt Date: 20080131
  Transmission Date: 20080703
  Serious: Yes (Other)
  Sender: FDA-Public Use
  Company Number: B0501919A

PATIENT
  Age: 10 Year
  Sex: Male
  Weight: 26 kg

DRUGS (5)
  1. RELENZA [Suspect]
     Indication: INFLUENZA
     Dosage: 5MG TWICE PER DAY
     Route: 055
     Dates: start: 20071203, end: 20071208
  2. MUCODYNE [Concomitant]
     Indication: BRONCHITIS
     Dosage: 750MG PER DAY
     Route: 048
     Dates: start: 20071203, end: 20071208
  3. ASVERIN [Concomitant]
     Indication: BRONCHITIS
     Dosage: 60MG PER DAY
     Route: 048
     Dates: start: 20071203, end: 20071208
  4. CALONAL [Concomitant]
     Indication: INFLUENZA
     Route: 048
     Dates: start: 20071203
  5. HOKUNALIN [Concomitant]
     Indication: ASTHMA
     Dosage: 1MG PER DAY
     Route: 062
     Dates: start: 20071203, end: 20071208

REACTIONS (1)
  - ABNORMAL BEHAVIOUR [None]
